FAERS Safety Report 13072172 (Version 1)
Quarter: 2016Q4

REPORT INFORMATION
  Report Type: Spontaneous
  Country: IE (occurrence: IE)
  Receive Date: 20161229
  Receipt Date: 20161229
  Transmission Date: 20170207
  Serious: Yes (Other)
  Sender: FDA-Public Use
  Company Number: IE-FRESENIUS KABI-FK201610256

PATIENT
  Age: 62 Year
  Sex: Female

DRUGS (2)
  1. IRINOTECAN (MANUFACTURER UNKNOWN) [Suspect]
     Active Substance: IRINOTECAN
     Indication: COLORECTAL CANCER
     Route: 065
  2. CETUXIMAB [Concomitant]
     Active Substance: CETUXIMAB
     Indication: COLORECTAL CANCER

REACTIONS (1)
  - Skin hyperpigmentation [Unknown]
